FAERS Safety Report 15281857 (Version 1)
Quarter: 2018Q3

REPORT INFORMATION
  Report Type: Spontaneous
  Country: US (occurrence: US)
  Receive Date: 20180815
  Receipt Date: 20180815
  Transmission Date: 20181010
  Serious: Yes (Hospitalization, Other)
  Sender: FDA-Public Use
  Company Number: US-PRINSTON PHARMACEUTICAL INC.-2018PRN00523

PATIENT
  Age: 67 Year
  Sex: Female
  Weight: 85.26 kg

DRUGS (5)
  1. VALSARTAN. [Suspect]
     Active Substance: VALSARTAN
     Indication: HYPERTENSION
     Dosage: 80 MG, 1X/DAY
     Route: 048
     Dates: start: 20180627, end: 20180628
  2. LOSARTAN POTASSIUM. [Suspect]
     Active Substance: LOSARTAN POTASSIUM
     Dosage: UNK
  3. MECLIZINE [Concomitant]
     Active Substance: MECLIZINE HYDROCHLORIDE
     Indication: VERTIGO
  4. VITAMIN D [Concomitant]
     Active Substance: CHOLECALCIFEROL
  5. VALSARTAN. [Suspect]
     Active Substance: VALSARTAN
     Indication: DYSPNOEA
     Dosage: 40 MG, 1X/DAY
     Dates: start: 20180629, end: 2018

REACTIONS (11)
  - Heart rate decreased [Recovering/Resolving]
  - Dyspnoea [Unknown]
  - Hypotension [Recovering/Resolving]
  - Back pain [Recovering/Resolving]
  - Nausea [Recovered/Resolved]
  - Loss of consciousness [Recovering/Resolving]
  - Cardiomyopathy [Unknown]
  - Headache [Recovering/Resolving]
  - Malaise [Recovering/Resolving]
  - Dysstasia [Recovered/Resolved]
  - Dizziness [Recovering/Resolving]

NARRATIVE: CASE EVENT DATE: 2018
